FAERS Safety Report 8418013-1 (Version None)
Quarter: 2012Q2

REPORT INFORMATION
  Report Type: 
  Country: None (occurrence: None)
  Receive Date: 20120607
  Receipt Date: 20120530
  Transmission Date: 20120825
  Serious: Yes (Other)
  Sender: FDA-Public Use
  Company Number: JP-JNJFOC-20120502809

PATIENT
  Age: 82 Year
  Sex: Female
  Weight: 42 kg

DRUGS (5)
  1. GALANTAMINE HYDROBROMIDE [Suspect]
     Route: 048
     Dates: start: 20120312, end: 20120424
  2. GALANTAMINE HYDROBROMIDE [Suspect]
     Route: 048
     Dates: start: 20120401
  3. DONEPEZIL HCL [Suspect]
     Indication: PRODUCT USED FOR UNKNOWN INDICATION
     Route: 065
     Dates: end: 20120401
  4. FLAVOXATE HYDROCHLORIDE [Suspect]
     Indication: POLLAKIURIA
     Route: 048
     Dates: start: 20120130, end: 20120424
  5. GALANTAMINE HYDROBROMIDE [Suspect]
     Indication: DEMENTIA ALZHEIMER'S TYPE
     Route: 048
     Dates: start: 20120128, end: 20120311

REACTIONS (1)
  - CHOLESTASIS [None]
